FAERS Safety Report 7493006-X (Version None)
Quarter: 2011Q2

REPORT INFORMATION
  Report Type: 
  Country: None (occurrence: None)
  Receive Date: 20110519
  Receipt Date: 20110519
  Transmission Date: 20111010
  Serious: Yes (Hospitalization)
  Sender: FDA-Public Use
  Company Number: None

PATIENT
  Age: 64 Year
  Sex: Male
  Weight: 162 kg

DRUGS (2)
  1. BUMETANIDE [Suspect]
     Indication: DIURETIC THERAPY
     Dosage: 3 MG BID PO
     Route: 048
     Dates: start: 20050418
  2. METOLAZONE [Suspect]
     Indication: DIURETIC THERAPY
     Dosage: 5 MG EVERY DAY PO
     Route: 048
     Dates: start: 20091127, end: 20110512

REACTIONS (1)
  - RENAL FAILURE ACUTE [None]
